FAERS Safety Report 6992383-3 (Version None)
Quarter: 2010Q3

REPORT INFORMATION
  Report Type: 
  Country: None (occurrence: None)
  Receive Date: 20100917
  Receipt Date: 20100914
  Transmission Date: 20110219
  Serious: Yes (Hospitalization, Other)
  Sender: FDA-Public Use
  Company Number: US-TEVA-213309USA

PATIENT
  Sex: Female

DRUGS (1)
  1. COPAXONE [Suspect]
     Indication: MULTIPLE SCLEROSIS
     Route: 058
     Dates: end: 20090101

REACTIONS (4)
  - ACUTE MYOCARDIAL INFARCTION [None]
  - DYSPNOEA [None]
  - HEART RATE INCREASED [None]
  - TREMOR [None]
